FAERS Safety Report 8263343-X (Version None)
Quarter: 2012Q1

REPORT INFORMATION
  Report Type: 
  Country: None (occurrence: None)
  Receive Date: 20120327
  Receipt Date: 20110422
  Transmission Date: 20120608
  Serious: Yes (Other)
  Sender: FDA-Public Use
  Company Number: PHHY2011US35129

PATIENT
  Age: 60 Year
  Sex: Male

DRUGS (1)
  1. GLEEVEC [Suspect]
     Indication: GASTROINTESTINAL CANCER METASTATIC
     Dosage: 400 MG, DAILY, ORAL
     Route: 048

REACTIONS (7)
  - GASTROINTESTINAL CANCER METASTATIC [None]
  - NEOPLASM MALIGNANT [None]
  - DRUG INTOLERANCE [None]
  - CONSTIPATION [None]
  - DIARRHOEA [None]
  - VOMITING [None]
  - NAUSEA [None]
